FAERS Safety Report 5923170-2 (Version None)
Quarter: 2008Q4

REPORT INFORMATION
  Report Type: 
  Country: None (occurrence: None)
  Receive Date: 20081020
  Receipt Date: 20080922
  Transmission Date: 20090506
  Serious: No
  Sender: FDA-Public Use
  Company Number: US-BAYER-200829201NA

PATIENT
  Sex: Female

DRUGS (2)
  1. AVELOX [Suspect]
     Indication: SINUSITIS
     Dosage: UNIT DOSE: 400 MG
     Route: 048
  2. AVELOX [Suspect]
     Dosage: UNIT DOSE: 400 MG
     Route: 048

REACTIONS (2)
  - RASH GENERALISED [None]
  - SINUSITIS [None]
